FAERS Safety Report 10080732 (Version 2)
Quarter: 2014Q4

REPORT INFORMATION
  Report Type: Spontaneous
  Country: US (occurrence: US)
  Receive Date: 20140416
  Receipt Date: 20141212
  Transmission Date: 20150528
  Serious: Yes (Hospitalization, Other)
  Sender: FDA-Public Use
  Company Number: US-BAYER-2014-055659

PATIENT
  Age: 46 Year
  Sex: Female
  Weight: 79.82 kg

DRUGS (3)
  1. YASMIN [Suspect]
     Active Substance: DROSPIRENONE\ETHINYL ESTRADIOL
     Dosage: UNK
     Route: 048
     Dates: start: 2004, end: 2005
  2. FISH OIL [Concomitant]
     Active Substance: FISH OIL
     Dosage: 1000 MG, UNK
  3. FLAXSEED [Concomitant]
     Active Substance: FLAX SEED
     Dosage: 1 CAP A DAY

REACTIONS (8)
  - Thrombosis [None]
  - Peripheral artery thrombosis [None]
  - Aortic thrombosis [None]
  - Pulmonary embolism [None]
  - Injury [None]
  - Cerebrovascular accident [None]
  - Deep vein thrombosis [None]
  - Pain [None]

NARRATIVE: CASE EVENT DATE: 2004
